FAERS Safety Report 9653251 (Version 1)
Quarter: 2013Q4

REPORT INFORMATION
  Report Type: Spontaneous
  Country: GB (occurrence: GB)
  Receive Date: 20131029
  Receipt Date: 20131029
  Transmission Date: 20140711
  Serious: Yes (Life-Threatening)
  Sender: FDA-Public Use
  Company Number: GB-TEVA-439412ISR

PATIENT
  Age: 61 Year
  Sex: Female

DRUGS (1)
  1. PROPRANOLOL [Suspect]
     Indication: EXTRASYSTOLES
     Route: 048
     Dates: start: 20131002, end: 20131002

REACTIONS (1)
  - Palpitations [Recovered/Resolved]
